FAERS Safety Report 9466202 (Version 1)
Quarter: 2013Q3

REPORT INFORMATION
  Report Type: Spontaneous
  Country: IT (occurrence: IT)
  Receive Date: 20130820
  Receipt Date: 20130820
  Transmission Date: 20140515
  Serious: Yes (Other)
  Sender: FDA-Public Use
  Company Number: IT-ACTAVIS-2013-14607

PATIENT
  Age: 50 Year
  Sex: Female

DRUGS (5)
  1. IRINOTECAN HYDROCHLORIDE (UNKNOWN) [Suspect]
     Indication: COLON CANCER METASTATIC
     Dosage: 280 MG, UNKNOWN
     Route: 042
     Dates: start: 20130711, end: 20130711
  2. ATROPINE [Suspect]
     Indication: COLON CANCER METASTATIC
     Dosage: 0.5 MG, UNKNOWN
     Route: 058
     Dates: start: 20130711, end: 20130711
  3. ZOFRAN                             /00955301/ [Concomitant]
     Indication: PRODUCT USED FOR UNKNOWN INDICATION
     Dosage: UNK, UNKNOWN
     Route: 065
  4. RANIDIL [Concomitant]
     Indication: PRODUCT USED FOR UNKNOWN INDICATION
     Dosage: UNK, UNKNOWN
     Route: 065
  5. SOLDESAM [Concomitant]
     Indication: PRODUCT USED FOR UNKNOWN INDICATION
     Dosage: UNK, UNKNOWN
     Route: 065

REACTIONS (5)
  - Hypertension [Recovered/Resolved]
  - Diarrhoea [Recovered/Resolved]
  - Hyperhidrosis [Recovered/Resolved]
  - Pruritus [Recovered/Resolved]
  - Vomiting [Recovered/Resolved]
